FAERS Safety Report 10182064 (Version 3)
Quarter: 2014Q3

REPORT INFORMATION
  Report Type: Spontaneous
  Country: SE (occurrence: SE)
  Receive Date: 20140519
  Receipt Date: 20140724
  Transmission Date: 20150326
  Serious: Yes (Other)
  Sender: FDA-Public Use
  Company Number: SE-BRISTOL-MYERS SQUIBB COMPANY-20672192

PATIENT
  Age: 61 Year
  Sex: Female

DRUGS (5)
  1. INSULIN [Concomitant]
     Active Substance: INSULIN NOS
  2. CRESTOR [Concomitant]
     Active Substance: ROSUVASTATIN CALCIUM
  3. BEHEPAN [Concomitant]
     Active Substance: HYDROXOCOBALAMIN
  4. BYDUREON [Suspect]
     Active Substance: EXENATIDE
     Route: 058
     Dates: start: 20140213, end: 20140326
  5. OMEPRAZOL [Concomitant]
     Active Substance: OMEPRAZOLE

REACTIONS (6)
  - Headache [Not Recovered/Not Resolved]
  - Urinary tract infection [Unknown]
  - Hypersensitivity [Recovered/Resolved]
  - Constipation [Recovered/Resolved]
  - Pneumonia [Recovered/Resolved]
  - Gastrointestinal disorder [Not Recovered/Not Resolved]

NARRATIVE: CASE EVENT DATE: 2014
